FAERS Safety Report 18174157 (Version 1)
Quarter: 2020Q3

REPORT INFORMATION
  Report Type: Spontaneous
  Country: US (occurrence: US)
  Receive Date: 20200819
  Receipt Date: 20200819
  Transmission Date: 20201103
  Serious: Yes (Other)
  Sender: FDA-Public Use
  Company Number: None

PATIENT
  Age: 65 Year
  Sex: Female

DRUGS (2)
  1. MONTELUKAST SODIUM 10 MG. TABLET [Suspect]
     Active Substance: MONTELUKAST SODIUM
     Indication: CHRONIC SINUSITIS
     Dosage: ?          QUANTITY:1 TABLET(S);?
     Route: 048
     Dates: start: 20200806
  2. MONTELUKAST SODIUM 10 MG. TABLET [Suspect]
     Active Substance: MONTELUKAST SODIUM
     Indication: NASAL POLYPS
     Dosage: ?          QUANTITY:1 TABLET(S);?
     Route: 048
     Dates: start: 20200806

REACTIONS (2)
  - Depressed mood [None]
  - Depression [None]

NARRATIVE: CASE EVENT DATE: 20200819
